FAERS Safety Report 15740425 (Version 1)
Quarter: 2018Q4

REPORT INFORMATION
  Report Type: Spontaneous
  Country: JP (occurrence: JP)
  Receive Date: 20181219
  Receipt Date: 20181219
  Transmission Date: 20190205
  Serious: Yes (Hospitalization)
  Sender: FDA-Public Use
  Company Number: JP-MYLANLABS-2018M1094095

PATIENT
  Age: 14 Year
  Sex: Male

DRUGS (6)
  1. ETOPOSIDE. [Suspect]
     Active Substance: ETOPOSIDE
     Indication: EXTRAGONADAL PRIMARY NON-SEMINOMA
     Dosage: 3 CYCLES ALONG WITH BLEOMYCIN AND CISPLATIN; LATER ONE AND TWO CYCLES WITH CARBOPLATIN, PRE AND P...
     Route: 065
  2. PACLITAXEL. [Concomitant]
     Active Substance: PACLITAXEL
     Indication: EXTRAGONADAL PRIMARY NON-SEMINOMA
     Dosage: PRE-OPERATIVELY, ONE CYCLE WITH IFOSFAMIDE AND CISPLATIN; TWO CYCLES WITH IFOSFAMIDE POST-OPERATI...
     Route: 065
  3. CISPLATIN. [Concomitant]
     Active Substance: CISPLATIN
     Indication: EXTRAGONADAL PRIMARY NON-SEMINOMA
     Dosage: 3 CYCLES WITH ETOPOSIDE AND BLEOMYCIN; LATER ONE CYCLE WITH PACLITAXEL AND IFOSFAMIDE; CUMULATIVE...
     Route: 065
  4. BLEOMYCIN [Concomitant]
     Active Substance: BLEOMYCIN SULFATE
     Indication: EXTRAGONADAL PRIMARY NON-SEMINOMA
     Dosage: 3 CYCLES WITH ETOPOSIDE AND CISPLATIN; CUMULATIVE DOSE FOR THE TREATMENT OF NON-SEMINOMA: 45MG/M2
     Route: 065
  5. CARBOPLATIN. [Concomitant]
     Active Substance: CARBOPLATIN
     Indication: EXTRAGONADAL PRIMARY NON-SEMINOMA
     Dosage: ONE CYCLE WITH ETOPOSIDE PRE AND TWO CYCLES POST-OPERATIVELY; CUMULATIVE DOSE FOR THE TREATMENT O...
     Route: 065
  6. IFOSFAMIDE. [Suspect]
     Active Substance: IFOSFAMIDE
     Indication: EXTRAGONADAL PRIMARY NON-SEMINOMA
     Dosage: PRE-OPERATIVELY, 1 CYCLE ALONG WITH PACLITAXEL AND CISPLATIN; POST-OPERATIVELY TWO CYCLES WITH PA...
     Route: 065

REACTIONS (1)
  - Osteosarcoma [Recovered/Resolved]
